FAERS Safety Report 21108986 (Version 1)
Quarter: 2022Q3

REPORT INFORMATION
  Report Type: Report from Study
  Country: CA (occurrence: CA)
  Receive Date: 20220721
  Receipt Date: 20220721
  Transmission Date: 20221027
  Serious: Yes (Disabling)
  Sender: FDA-Public Use
  Company Number: CA-ABBVIE-22K-028-4473076-00

PATIENT
  Sex: Female

DRUGS (2)
  1. HUMIRA [Suspect]
     Active Substance: ADALIMUMAB
     Indication: Ankylosing spondylitis
     Route: 058
     Dates: start: 20200826
  2. COVID-19 VACCINE [Concomitant]
     Indication: COVID-19 prophylaxis
     Route: 030

REACTIONS (6)
  - Disability [Unknown]
  - Irritable bowel syndrome [Unknown]
  - Back disorder [Unknown]
  - Depression [Unknown]
  - Gastrooesophageal reflux disease [Unknown]
  - Arthropathy [Unknown]
